FAERS Safety Report 17991938 (Version 1)
Quarter: 2020Q3

REPORT INFORMATION
  Report Type: Report from Study
  Country: IN (occurrence: IN)
  Receive Date: 20200707
  Receipt Date: 20200707
  Transmission Date: 20201103
  Serious: Yes (Other)
  Sender: FDA-Public Use
  Company Number: NVSC2020IN189910

PATIENT
  Sex: Female

DRUGS (1)
  1. KRYXANA [Suspect]
     Active Substance: RIBOCICLIB
     Indication: HYPOPARATHYROIDISM
     Dosage: 600 MG, QD
     Route: 065
     Dates: start: 20200430, end: 20200501

REACTIONS (3)
  - Typhoid fever [Unknown]
  - Vomiting [Unknown]
  - Product use in unapproved indication [Unknown]
